FAERS Safety Report 4319652-X (Version None)
Quarter: 2004Q1

REPORT INFORMATION
  Report Type: 
  Country: None (occurrence: None)
  Receive Date: 20040319
  Receipt Date: 20011025
  Transmission Date: 20041129
  Serious: Yes (Other)
  Sender: FDA-Public Use
  Company Number: WAES 01104500

PATIENT
  Age: 55 Year
  Sex: Male
  Weight: 70 kg

DRUGS (1)
  1. VIOXX [Suspect]
     Indication: LOCAL SWELLING
     Route: 048
     Dates: start: 20010115, end: 20010217

REACTIONS (9)
  - AMNESIA [None]
  - BLOOD PRESSURE FLUCTUATION [None]
  - CARDIOVASCULAR DISORDER [None]
  - CONVULSION [None]
  - HAEMATEMESIS [None]
  - MOTOR DYSFUNCTION [None]
  - OEDEMA [None]
  - RENAL FAILURE [None]
  - TREMOR [None]
